FAERS Safety Report 4405584-5 (Version None)
Quarter: 2004Q3

REPORT INFORMATION
  Report Type: 
  Country: None (occurrence: None)
  Receive Date: 20040723
  Receipt Date: 20031007
  Transmission Date: 20050211
  Serious: No
  Sender: FDA-Public Use
  Company Number: US-GLAXOSMITHKLINE-A0429253A

PATIENT
  Age: 58 Year
  Sex: Female

DRUGS (8)
  1. AVANDIA [Suspect]
     Dosage: 4MG TWICE PER DAY
     Route: 048
  2. MONOPRIL [Concomitant]
  3. SYNTHROID [Concomitant]
  4. GLIPIZIDE [Concomitant]
  5. WELLBUTRIN SR [Concomitant]
  6. TRIAMTERENE AND HYDROCHLOROTHIAZIDE [Concomitant]
  7. PROZAC [Concomitant]
  8. ANTIBIOTIC [Concomitant]

REACTIONS (4)
  - DRY THROAT [None]
  - MYALGIA [None]
  - OROPHARYNGEAL SWELLING [None]
  - UPPER RESPIRATORY TRACT INFECTION [None]
